FAERS Safety Report 21370739 (Version 1)
Quarter: 2022Q3

REPORT INFORMATION
  Report Type: Report from Study
  Country: US (occurrence: None)
  Receive Date: 20220923
  Receipt Date: 20220923
  Transmission Date: 20221027
  Serious: Yes (Hospitalization)
  Sender: FDA-Public Use
  Company Number: US-Eisai Medical Research-EC-2022-121518

PATIENT
  Age: 93 Year
  Sex: Female
  Weight: 62 kg

DRUGS (11)
  1. LENVIMA [Suspect]
     Active Substance: LENVATINIB
     Indication: Renal cancer
     Route: 048
     Dates: start: 20220802, end: 20220907
  2. MULTIVITAMIN WITH MINERALS/FOLIC ACID [Concomitant]
  3. CALCIUM CARBONATE [Concomitant]
     Active Substance: CALCIUM CARBONATE
  4. DILTIAZEM [Concomitant]
     Active Substance: DILTIAZEM
  5. ASCORBIC ACID [Concomitant]
     Active Substance: ASCORBIC ACID
  6. VITAMIN D [Concomitant]
     Active Substance: VITAMIN D NOS
  7. VITAMIN E [Concomitant]
     Active Substance: .ALPHA.-TOCOPHEROL
  8. BROMONIDINE TARTRATE-TIMOLOL [Concomitant]
     Dosage: 0.2 - 0.5%
  9. CALCITONIN [Concomitant]
     Active Substance: CALCITONIN
     Dosage: 200U/ML
  10. CHLORTHALIDONE [Concomitant]
     Active Substance: CHLORTHALIDONE
  11. OSCAL ULTRA [Concomitant]

REACTIONS (3)
  - Hypertension [Unknown]
  - Asthenia [Recovering/Resolving]
  - Decreased appetite [Recovering/Resolving]

NARRATIVE: CASE EVENT DATE: 20220801
